FAERS Safety Report 25200604 (Version 4)
Quarter: 2025Q3

REPORT INFORMATION
  Report Type: Report from Study
  Country: CA (occurrence: CA)
  Receive Date: 20250415
  Receipt Date: 20250731
  Transmission Date: 20251021
  Serious: Yes (Other)
  Sender: UCB
  Company Number: CA-UCBSA-2024058784

PATIENT
  Age: 18 Year
  Sex: Male

DRUGS (1)
  1. BIMEKIZUMAB [Suspect]
     Active Substance: BIMEKIZUMAB
     Indication: Ankylosing spondylitis
     Dosage: 160 MILLIGRAM, EV 4 WEEKS
     Route: 058
     Dates: start: 20241024

REACTIONS (10)
  - Ankylosing spondylitis [Not Recovered/Not Resolved]
  - Arthropod bite [Recovered/Resolved]
  - Headache [Not Recovered/Not Resolved]
  - Diarrhoea [Recovering/Resolving]
  - Gastroenteritis viral [Not Recovered/Not Resolved]
  - Constipation [Unknown]
  - Hyperphagia [Not Recovered/Not Resolved]
  - Malaise [Not Recovered/Not Resolved]
  - Photophobia [Not Recovered/Not Resolved]
  - Product dose omission issue [Unknown]

NARRATIVE: CASE EVENT DATE: 20241001
